FAERS Safety Report 16282196 (Version 5)
Quarter: 2019Q3

REPORT INFORMATION
  Report Type: Report from Study
  Country: US (occurrence: US)
  Receive Date: 20190507
  Receipt Date: 20190713
  Transmission Date: 20191004
  Serious: Yes (Other)
  Sender: FDA-Public Use
  Company Number: PHEH2019US019237

PATIENT
  Sex: Female

DRUGS (1)
  1. COSENTYX [Suspect]
     Active Substance: SECUKINUMAB
     Indication: PRODUCT USED FOR UNKNOWN INDICATION
     Dosage: UNK
     Route: 065

REACTIONS (9)
  - Insomnia [Unknown]
  - Pain [Unknown]
  - Rash pustular [Unknown]
  - Spinal cord compression [Unknown]
  - Arthritis [Unknown]
  - Back pain [Unknown]
  - Macule [Unknown]
  - Blister [Unknown]
  - Alopecia [Unknown]
